FAERS Safety Report 25880386 (Version 1)
Quarter: 2025Q4

REPORT INFORMATION
  Report Type: Report from Study
  Country: US (occurrence: US)
  Receive Date: 20251004
  Receipt Date: 20251004
  Transmission Date: 20260118
  Serious: No
  Sender: SANDOZ
  Company Number: US-SANDOZ-SDZ2025US069231

PATIENT
  Age: 13 Year
  Sex: Female

DRUGS (2)
  1. OMNITROPE [Suspect]
     Active Substance: SOMATROPIN
     Indication: Hypopituitarism
     Dosage: 1.6 MG, QD (OMNITROPE 10 MG / 1.5 ML)
     Route: 058
     Dates: start: 20250917
  2. OMNITROPE [Suspect]
     Active Substance: SOMATROPIN
     Indication: Hypopituitarism
     Dosage: 1.6 MG, QD (OMNITROPE 10 MG / 1.5 ML)
     Route: 058
     Dates: start: 20250917

REACTIONS (5)
  - Exposure via skin contact [Unknown]
  - Device use error [Unknown]
  - Incorrect dose administered [Unknown]
  - Device difficult to use [Unknown]
  - Device leakage [Unknown]

NARRATIVE: CASE EVENT DATE: 20250917
